FAERS Safety Report 5620067-2 (Version None)
Quarter: 2008Q1

REPORT INFORMATION
  Report Type: 
  Country: None (occurrence: None)
  Receive Date: 20080208
  Receipt Date: 20080131
  Transmission Date: 20080703
  Serious: Yes (Life-Threatening, Hospitalization)
  Sender: FDA-Public Use
  Company Number: US-ABBOTT-08P-163-0435992-01

PATIENT
  Sex: Male
  Weight: 44.038 kg

DRUGS (22)
  1. KALETRA [Suspect]
     Indication: HIV INFECTION
     Route: 048
     Dates: start: 20070822, end: 20080126
  2. MONTELUKAST SODIUM [Concomitant]
     Indication: CHRONIC OBSTRUCTIVE PULMONARY DISEASE
     Dates: start: 20051221
  3. HYDROCHLOROTHIAZIDE [Concomitant]
     Indication: HYPERTENSION
     Dates: start: 20051221
  4. SERETIDE [Concomitant]
     Indication: CHRONIC OBSTRUCTIVE PULMONARY DISEASE
     Dosage: 250-500 MILLIGRAM
     Dates: start: 20050830
  5. TIOTROPIUM BROMIDE [Concomitant]
     Indication: CHRONIC OBSTRUCTIVE PULMONARY DISEASE
     Dates: start: 20061012
  6. ALENDRONATE SODIUM [Concomitant]
     Indication: OSTEOPOROSIS
     Dates: start: 20070501
  7. BOOST [Concomitant]
     Indication: MEDICAL DIET
     Dates: start: 20061012
  8. ASPIRIN [Concomitant]
     Indication: CARDIOVASCULAR EVENT PROPHYLAXIS
     Dates: start: 20060821
  9. PREDNISONE TAB [Concomitant]
     Indication: CHRONIC OBSTRUCTIVE PULMONARY DISEASE
     Dates: start: 20080104, end: 20080104
  10. PREDNISONE TAB [Concomitant]
     Dates: start: 20080105, end: 20080105
  11. PREDNISONE TAB [Concomitant]
     Dates: start: 20080106, end: 20080106
  12. PREDNISONE TAB [Concomitant]
     Dates: start: 20080107, end: 20080107
  13. PREDNISONE TAB [Concomitant]
     Dates: start: 20080116, end: 20080118
  14. PREDNISONE TAB [Concomitant]
     Dates: start: 20080119, end: 20080120
  15. PREDNISONE TAB [Concomitant]
     Dates: start: 20080121, end: 20080122
  16. PREDNISONE TAB [Concomitant]
     Dates: start: 20080123, end: 20080124
  17. PREDNISONE TAB [Concomitant]
     Dates: start: 20080125, end: 20080126
  18. METFORMIN HCL [Concomitant]
     Indication: HYPERGLYCAEMIA
     Dates: start: 20080118
  19. CHERACOL [Concomitant]
     Indication: COUGH
     Dates: start: 20080118
  20. INSULIN [Concomitant]
     Indication: HYPERGLYCAEMIA
     Dates: start: 20080116, end: 20080118
  21. MOXIFLOXACIN HYDROCHLORIDE [Concomitant]
     Indication: PNEUMONIA
     Dates: start: 20080103, end: 20080112
  22. HEPARIN [Concomitant]
     Indication: THROMBOSIS PROPHYLAXIS
     Dates: start: 20080116, end: 20080118

REACTIONS (2)
  - CHRONIC OBSTRUCTIVE PULMONARY DISEASE [None]
  - PULMONARY EMBOLISM [None]
